FAERS Safety Report 5388623-7 (Version None)
Quarter: 2007Q3

REPORT INFORMATION
  Report Type: 
  Country: None (occurrence: None)
  Receive Date: 20070711
  Receipt Date: 20070703
  Transmission Date: 20080115
  Serious: Yes (Other)
  Sender: FDA-Public Use
  Company Number: 2007SP013425

PATIENT
  Age: 14 Year
  Sex: Male
  Weight: 75 kg

DRUGS (2)
  1. DESLORATADINE [Suspect]
     Indication: HOUSE DUST ALLERGY
     Dosage: 1 DF
     Dates: start: 20070510, end: 20070513
  2. FLUTICASONE (CON.) [Concomitant]

REACTIONS (9)
  - BALANCE DISORDER [None]
  - CONFUSIONAL STATE [None]
  - EPISTAXIS [None]
  - GAIT DISTURBANCE [None]
  - MYALGIA [None]
  - PYREXIA [None]
  - RESPIRATORY TRACT INFECTION VIRAL [None]
  - TINNITUS [None]
  - VERTIGO [None]
